FAERS Safety Report 8826886 (Version 2)
Quarter: 2012Q4

REPORT INFORMATION
  Report Type: 
  Country: AE (occurrence: EG)
  Receive Date: 20121008
  Receipt Date: 20121016
  Transmission Date: 20130627
  Serious: Yes (Other)
  Sender: FDA-Public Use
  Company Number: AE-AMGEN-ARESP2012062394

PATIENT
  Age: 52 Year
  Sex: Female

DRUGS (1)
  1. PROLIA [Suspect]
     Indication: PRODUCT USED FOR UNKNOWN INDICATION
     Dosage: 60 mg, one time dose
     Route: 058
     Dates: start: 201203

REACTIONS (2)
  - Ascites [Unknown]
  - Jaundice [Unknown]
